FAERS Safety Report 14910231 (Version 1)
Quarter: 2018Q2

REPORT INFORMATION
  Report Type: Spontaneous
  Country: DE (occurrence: DE)
  Receive Date: 20180517
  Receipt Date: 20180517
  Transmission Date: 20180711
  Serious: Yes (Hospitalization)
  Sender: FDA-Public Use
  Company Number: DE-ASTRAZENECA-2018SE61535

PATIENT
  Age: 67 Year
  Sex: Female

DRUGS (5)
  1. CIPRAMIL [Suspect]
     Active Substance: CITALOPRAM HYDROBROMIDE
     Dosage: 20 MG, 1-0-1-0
     Route: 065
  2. THYRONAJOD [Concomitant]
     Active Substance: LEVOTHYROXINE SODIUM\POTASSIUM IODIDE
     Dosage: 75/150 ???G, 1-0-0-0
     Route: 065
  3. ABILIFY [Suspect]
     Active Substance: ARIPIPRAZOLE
     Dosage: 15 MG, 1-0-0-0
     Route: 065
  4. QUETIAPINE. [Suspect]
     Active Substance: QUETIAPINE
     Dosage: 50 MG, 0-0-1-0
     Route: 048
  5. BISOBETA 5 [Concomitant]
     Dosage: 5 MG, 1-0-0-0
     Route: 065

REACTIONS (4)
  - Dyspnoea [Unknown]
  - Medication monitoring error [Unknown]
  - Drug prescribing error [Unknown]
  - Oedema peripheral [Unknown]
